FAERS Safety Report 4984227-6 (Version None)
Quarter: 2006Q2

REPORT INFORMATION
  Report Type: 
  Country: None (occurrence: None)
  Receive Date: 20060420
  Receipt Date: 20060411
  Transmission Date: 20061013
  Serious: Yes (Death)
  Sender: FDA-Public Use
  Company Number: 200610455GDS

PATIENT
  Age: 79 Year
  Sex: Female

DRUGS (9)
  1. CIPRO [Suspect]
     Indication: RESPIRATORY TRACT INFECTION
     Dosage: 1000 MG, TOTAL DAILY; ORAL
     Route: 048
     Dates: start: 19990101
  2. DIGOXIN [Concomitant]
  3. LASIX [Concomitant]
  4. LEVOTHYROXINE SODIUM [Concomitant]
  5. POTASSIUM CHLORIDE [Concomitant]
  6. PULMICORT [Concomitant]
  7. VENTOLIN [Concomitant]
  8. WARFARIN SODIUM [Concomitant]
  9. ATROVENT [Concomitant]

REACTIONS (3)
  - HAEMATURIA [None]
  - HYPOTENSION [None]
  - RENAL FAILURE ACUTE [None]
